FAERS Safety Report 6969319-4 (Version None)
Quarter: 2010Q3

REPORT INFORMATION
  Report Type: 
  Country: None (occurrence: None)
  Receive Date: 20100907
  Receipt Date: 20100831
  Transmission Date: 20110219
  Serious: Yes (Death)
  Sender: FDA-Public Use
  Company Number: NL-ELI_LILLY_AND_COMPANY-NL201009000078

PATIENT
  Sex: Male

DRUGS (4)
  1. CIALIS [Suspect]
     Indication: ERECTILE DYSFUNCTION
     Dosage: 20 MG, AS NEEDED
     Route: 065
     Dates: start: 20060503
  2. ACENOCOUMAROL MERCK [Concomitant]
     Dosage: UNK, UNK
  3. ZESTRIL [Concomitant]
     Dosage: 10 MG, DAILY (1/D)
  4. LIPITOR [Concomitant]
     Dosage: 20 MG, DAILY (1/D)

REACTIONS (2)
  - MYOCARDIAL INFARCTION [None]
  - VENTRICULAR FIBRILLATION [None]
